FAERS Safety Report 8925656 (Version 2)
Quarter: 2013Q4

REPORT INFORMATION
  Report Type: Spontaneous
  Country: FR (occurrence: FR)
  Receive Date: 20121126
  Receipt Date: 20131022
  Transmission Date: 20140711
  Serious: Yes (Hospitalization)
  Sender: FDA-Public Use
  Company Number: FR-BRISTOL-MYERS SQUIBB COMPANY-17137498

PATIENT
  Age: 46 Year
  Sex: Female

DRUGS (12)
  1. ABILIFY [Suspect]
     Indication: BIPOLAR DISORDER
     Route: 048
  2. STELARA [Suspect]
     Indication: PSORIASIS
     Dosage: MAY2012 AND REINTRODUCE?SOLUTION FOR INJECTION
     Route: 058
     Dates: start: 201204
  3. LOXAPAC [Suspect]
  4. MESTINON [Concomitant]
  5. TANGANIL [Concomitant]
  6. HAVLANE [Concomitant]
  7. LEPTICUR [Concomitant]
  8. INEXIUM [Concomitant]
  9. TAHOR [Concomitant]
  10. LYSANXIA [Concomitant]
  11. DEPAKOTE [Concomitant]
  12. PREVISCAN [Concomitant]

REACTIONS (1)
  - Pulmonary embolism [Recovered/Resolved]
